FAERS Safety Report 6496809-3 (Version None)
Quarter: 2009Q4

REPORT INFORMATION
  Report Type: 
  Country: None (occurrence: None)
  Receive Date: 20091125
  Receipt Date: 20090403
  Transmission Date: 20100525
  Serious: Yes (Hospitalization)
  Sender: FDA-Public Use
  Company Number: 2009BH005394

PATIENT
  Age: 77 Year
  Sex: Female
  Weight: 90.2 kg

DRUGS (2)
  1. DIANEAL [Suspect]
     Indication: PERITONEAL DIALYSIS
     Dosage: 9.5 L; EVERY DAY; IP
     Route: 033
     Dates: end: 20090327
  2. EXTRANEAL [Suspect]
     Indication: PERITONEAL DIALYSIS
     Dosage: 2 L; EVERY DAY; IP
     Route: 033
     Dates: end: 20090327

REACTIONS (3)
  - PERITONEAL DIALYSIS COMPLICATION [None]
  - PERITONEAL DISORDER [None]
  - PERITONITIS BACTERIAL [None]
